FAERS Safety Report 9012676 (Version 2)
Quarter: 2013Q4

REPORT INFORMATION
  Report Type: Spontaneous
  Country: US (occurrence: US)
  Receive Date: 20130114
  Receipt Date: 20131206
  Transmission Date: 20140711
  Serious: Yes (Hospitalization, Other)
  Sender: FDA-Public Use
  Company Number: US-009507513-1301USA005194

PATIENT
  Sex: Female
  Weight: 99.77 kg

DRUGS (1)
  1. NUVARING [Suspect]
     Indication: CONTRACEPTION
     Dosage: UNK
     Route: 067
     Dates: start: 200501, end: 200504

REACTIONS (17)
  - Cholecystectomy [Unknown]
  - Pulmonary embolism [Recovered/Resolved]
  - Coagulopathy [Unknown]
  - Gastrectomy [Unknown]
  - Systolic hypertension [Not Recovered/Not Resolved]
  - Dyslipidaemia [Unknown]
  - Blood cholesterol increased [Not Recovered/Not Resolved]
  - Hernia repair [Unknown]
  - Chest pain [Recovered/Resolved]
  - Cholelithiasis [Unknown]
  - Menorrhagia [Unknown]
  - Hernia repair [Unknown]
  - Musculoskeletal chest pain [Unknown]
  - Dyspnoea [Unknown]
  - Pulmonary mass [Unknown]
  - Vaginitis bacterial [Unknown]
  - Dyspnoea [Unknown]
